FAERS Safety Report 14856034 (Version 4)
Quarter: 2018Q2

REPORT INFORMATION
  Report Type: Spontaneous
  Country: US (occurrence: US)
  Receive Date: 20180507
  Receipt Date: 20180626
  Transmission Date: 20180711
  Serious: Yes (Hospitalization, Other)
  Sender: FDA-Public Use
  Company Number: US-ACTELION-A-NJ2018-165917

PATIENT
  Age: 23 Year
  Sex: Female
  Weight: 75.28 kg

DRUGS (6)
  1. UPTRAVI [Suspect]
     Active Substance: SELEXIPAG
     Dosage: 800 MCG, QAM; 600 MCG, QPM
     Route: 048
  2. UPTRAVI [Suspect]
     Active Substance: SELEXIPAG
     Indication: PULMONARY ARTERIAL HYPERTENSION
     Dosage: 1400 MCG, BID
     Route: 048
     Dates: start: 20171109, end: 20180606
  3. UPTRAVI [Suspect]
     Active Substance: SELEXIPAG
     Dosage: 1600 MCG, BID
     Route: 048
  4. LETAIRIS [Concomitant]
     Active Substance: AMBRISENTAN
  5. REMODULIN [Concomitant]
     Active Substance: TREPROSTINIL
  6. ADEMPAS [Concomitant]
     Active Substance: RIOCIGUAT

REACTIONS (16)
  - Oxygen saturation decreased [Unknown]
  - Hypoxia [Unknown]
  - Disease progression [Unknown]
  - Therapy non-responder [Unknown]
  - Arthralgia [Unknown]
  - Palpitations [Unknown]
  - Chest pain [Unknown]
  - Headache [Unknown]
  - Muscular weakness [Unknown]
  - Diarrhoea [Unknown]
  - Vomiting [Unknown]
  - Flushing [Unknown]
  - Syncope [Unknown]
  - Blood pressure fluctuation [Unknown]
  - Gait disturbance [Unknown]
  - Fatigue [Unknown]
